FAERS Safety Report 5201490-7 (Version None)
Quarter: 2006Q4

REPORT INFORMATION
  Report Type: 
  Country: None (occurrence: None)
  Receive Date: 20061004
  Receipt Date: 20060731
  Transmission Date: 20070319
  Serious: No
  Sender: FDA-Public Use
  Company Number: US200607005351

PATIENT
  Sex: Female

DRUGS (1)
  1. ALIMTA [Suspect]
     Dosage: INTRAVENOUS
     Route: 042
     Dates: start: 20060724

REACTIONS (1)
  - HAEMORRHAGE [None]
